FAERS Safety Report 4958268-9 (Version None)
Quarter: 2006Q1

REPORT INFORMATION
  Report Type: 
  Country: None (occurrence: None)
  Receive Date: 20060330
  Receipt Date: 20060227
  Transmission Date: 20060701
  Serious: Yes (Other)
  Sender: FDA-Public Use
  Company Number: PHHO2006US03583

PATIENT
  Age: 49 Year
  Sex: Female
  Weight: 71.4 kg

DRUGS (1)
  1. TEGASEROD [Suspect]
     Indication: DYSPEPSIA
     Dosage: 6 MG, BID
     Route: 048
     Dates: start: 20050822, end: 20060221

REACTIONS (16)
  - ABDOMINAL PAIN LOWER [None]
  - ABDOMINAL PAIN UPPER [None]
  - ABDOMINAL TENDERNESS [None]
  - BLOOD SODIUM INCREASED [None]
  - CHILLS [None]
  - COLITIS [None]
  - CONCOMITANT DISEASE PROGRESSION [None]
  - CONSTIPATION [None]
  - DECREASED APPETITE [None]
  - DIVERTICULITIS [None]
  - DIVERTICULUM [None]
  - FAECES DISCOLOURED [None]
  - HAEMORRHOIDS [None]
  - MUCOSAL INFLAMMATION [None]
  - OVARIAN CYST [None]
  - PELVIC MASS [None]
